FAERS Safety Report 13885995 (Version 3)
Quarter: 2017Q3

REPORT INFORMATION
  Report Type: Report from Study
  Country: FR (occurrence: FR)
  Receive Date: 20170821
  Receipt Date: 20170920
  Transmission Date: 20171127
  Serious: Yes (Hospitalization)
  Sender: FDA-Public Use
  Company Number: FR-ROCHE-1978761

PATIENT
  Age: 62 Year
  Sex: Female
  Weight: 53 kg

DRUGS (28)
  1. UVEDOSE [Concomitant]
     Active Substance: CHOLECALCIFEROL
     Indication: VITAMIN D DEFICIENCY
     Dosage: 1 AMPOULE/MONTH
     Route: 048
     Dates: start: 20170106
  2. HYPERIUM [Concomitant]
     Active Substance: RILMENIDINE PHOSPHATE
     Indication: HYPERTENSION
     Route: 048
     Dates: start: 20130123
  3. FORLAX [Concomitant]
     Active Substance: POLYETHYLENE GLYCOL 4000
     Indication: CONSTIPATION
     Dosage: 2 SACHET
     Route: 048
     Dates: start: 20150705
  4. GABAPENTINE ACTAVIS [Concomitant]
     Indication: NEURALGIA
  5. IMOVANE [Concomitant]
     Active Substance: ZOPICLONE
     Indication: INSOMNIA
     Route: 048
     Dates: start: 20170802
  6. ALPRAZOLAM. [Concomitant]
     Active Substance: ALPRAZOLAM
     Indication: DEPRESSIVE SYMPTOM
  7. LEDERFOLINE [Concomitant]
     Active Substance: LEUCOVORIN CALCIUM
     Route: 048
     Dates: start: 20130305
  8. IMOVANE [Concomitant]
     Active Substance: ZOPICLONE
     Indication: ABORTION SPONTANEOUS
     Route: 048
     Dates: start: 20161205
  9. UVEDOSE [Concomitant]
     Active Substance: CHOLECALCIFEROL
     Indication: HYPOVITAMINOSIS
     Dosage: 1 AMPOULE /DAY
     Route: 048
     Dates: start: 20161205, end: 20170105
  10. PARACETAMOL [Concomitant]
     Active Substance: ACETAMINOPHEN
     Route: 048
     Dates: start: 20170708
  11. INEXIUM [Concomitant]
     Active Substance: ESOMEPRAZOLE
     Indication: GASTROOESOPHAGEAL REFLUX DISEASE
     Dosage: ANTIDEPRESSIVE SYNDROME
     Route: 048
     Dates: start: 20131104
  12. ATHYMIL [Concomitant]
     Active Substance: MIANSERIN HYDROCHLORIDE
     Indication: DEPRESSIVE SYMPTOM
     Dosage: 1 TABLET
     Route: 048
     Dates: start: 20160604
  13. VALIUM [Concomitant]
     Active Substance: DIAZEPAM
     Indication: DEPRESSIVE SYMPTOM
     Route: 048
     Dates: start: 20170802
  14. METHYLPREDNISOLONE. [Suspect]
     Active Substance: METHYLPREDNISOLONE
     Indication: VASCULITIS NECROTISING
     Route: 048
     Dates: start: 20170320
  15. ALPRAZOLAM. [Concomitant]
     Active Substance: ALPRAZOLAM
     Indication: GRANULOMATOSIS WITH POLYANGIITIS
     Dosage: 2 TAB/DAY
     Route: 048
     Dates: start: 20161205
  16. TARKA [Concomitant]
     Active Substance: TRANDOLAPRIL\VERAPAMIL HYDROCHLORIDE
     Indication: HYPERTENSION
     Route: 048
     Dates: start: 20110222
  17. ZELITREX [Concomitant]
     Active Substance: VALACYCLOVIR HYDROCHLORIDE
     Indication: INFECTION PROPHYLAXIS
     Route: 048
     Dates: start: 20100909
  18. CORTANCYL [Concomitant]
     Active Substance: PREDNISONE
     Route: 048
     Dates: start: 20170802
  19. SPECIAFOLDINE [Concomitant]
     Active Substance: FOLIC ACID
     Route: 048
     Dates: start: 20170802
  20. RITUXIMAB. [Suspect]
     Active Substance: RITUXIMAB
     Indication: VASCULITIS NECROTISING
     Dosage: SUBSEQUENT DOSES: 13/JUN/2016 (M34), 05/DEC/2016 (M40) AND 12/JUN/2017 (M45).
     Route: 042
     Dates: start: 20151214
  21. XANAX [Concomitant]
     Active Substance: ALPRAZOLAM
     Dosage: 1 TABLET
     Route: 048
     Dates: start: 20160604
  22. BACTRIM [Concomitant]
     Active Substance: SULFAMETHOXAZOLE\TRIMETHOPRIM
     Indication: INFECTION
     Dosage: 1 TABLET
     Route: 048
     Dates: start: 20151214
  23. PARACETAMOL [Concomitant]
     Active Substance: ACETAMINOPHEN
     Indication: PAIN
     Route: 048
     Dates: start: 20150630
  24. ATHYMIL [Concomitant]
     Active Substance: MIANSERIN HYDROCHLORIDE
     Route: 048
     Dates: start: 20160808
  25. PANTOPRAZOLE [Concomitant]
     Active Substance: PANTOPRAZOLE
     Indication: GASTROOESOPHAGEAL REFLUX DISEASE
     Route: 048
     Dates: start: 20170802
  26. GABAPENTINE ACTAVIS [Concomitant]
     Indication: APPENDICECTOMY
     Route: 048
     Dates: start: 20160613
  27. MONOPROST [Concomitant]
     Active Substance: LATANOPROST
     Dosage: 1 DRIP
     Route: 065
     Dates: start: 20151214
  28. ATHYMIL [Concomitant]
     Active Substance: MIANSERIN HYDROCHLORIDE
     Route: 048
     Dates: start: 20170802

REACTIONS (5)
  - Vertigo [Not Recovered/Not Resolved]
  - Visual impairment [Not Recovered/Not Resolved]
  - Fall [Unknown]
  - Lumbar vertebral fracture [Recovered/Resolved]
  - Headache [Not Recovered/Not Resolved]

NARRATIVE: CASE EVENT DATE: 201707
